FAERS Safety Report 22175435 (Version 1)
Quarter: 2023Q2

REPORT INFORMATION
  Report Type: Spontaneous
  Country: CO (occurrence: CO)
  Receive Date: 20230405
  Receipt Date: 20230405
  Transmission Date: 20230722
  Serious: Yes (Hospitalization, Other)
  Sender: FDA-Public Use
  Company Number: CO-SUN PHARMACEUTICAL INDUSTRIES LTD-2023RR-384010

PATIENT
  Age: 27 Year
  Sex: Female

DRUGS (2)
  1. DICLOFENAC [Suspect]
     Active Substance: DICLOFENAC
     Indication: Stomatitis
     Dosage: 75 MILLIGRAM, SINGLE DOSE
     Route: 030
  2. IBUPROFEN [Suspect]
     Active Substance: IBUPROFEN
     Indication: Stomatitis
     Dosage: UNK
     Route: 048

REACTIONS (2)
  - Disease progression [Unknown]
  - Toxic epidermal necrolysis [Recovered/Resolved]
